FAERS Safety Report 6809036-4 (Version None)
Quarter: 2010Q2

REPORT INFORMATION
  Report Type: 
  Country: None (occurrence: None)
  Receive Date: 20100630
  Receipt Date: 20100621
  Transmission Date: 20101027
  Serious: Yes (Hospitalization)
  Sender: FDA-Public Use
  Company Number: 2006BI010824

PATIENT
  Age: 38 Year
  Sex: Female

DRUGS (5)
  1. AVONEX [Suspect]
     Indication: MULTIPLE SCLEROSIS
     Route: 030
     Dates: start: 20000201, end: 20011201
  2. AVONEX [Suspect]
     Route: 030
     Dates: start: 20050924, end: 20060401
  3. AVONEX [Suspect]
     Route: 030
     Dates: start: 20060401, end: 20060519
  4. AVONEX [Suspect]
     Route: 030
     Dates: start: 20090801
  5. UNKNOWN STEROIDS [Concomitant]

REACTIONS (1)
  - ARTHROPATHY [None]
